FAERS Safety Report 5221335-9 (Version None)
Quarter: 2007Q1

REPORT INFORMATION
  Report Type: 
  Country: None (occurrence: None)
  Receive Date: 20070126
  Receipt Date: 20070116
  Transmission Date: 20070707
  Serious: Yes (Hospitalization)
  Sender: FDA-Public Use
  Company Number: KR-PFIZER INC-2007002447

PATIENT
  Sex: Male
  Weight: 65 kg

DRUGS (4)
  1. SU-011,248 [Suspect]
     Indication: METASTATIC RENAL CELL CARCINOMA
     Route: 048
  2. OXYCODONE HCL [Concomitant]
     Route: 048
     Dates: start: 20060810
  3. CIMETIDINE HCL [Concomitant]
     Route: 048
     Dates: start: 20060901
  4. AMLODIPINE [Concomitant]
     Route: 048
     Dates: start: 20061218

REACTIONS (3)
  - COLITIS [None]
  - COLITIS ISCHAEMIC [None]
  - PSEUDOMEMBRANOUS COLITIS [None]
